FAERS Safety Report 13277825 (Version 3)
Quarter: 2017Q2

REPORT INFORMATION
  Report Type: Report from Study
  Country: US (occurrence: US)
  Receive Date: 20170228
  Receipt Date: 20170509
  Transmission Date: 20170830
  Serious: Yes (Death, Hospitalization)
  Sender: FDA-Public Use
  Company Number: US-ASTRAZENECA-2017SE20930

PATIENT
  Age: 834 Month
  Sex: Female
  Weight: 51.2 kg

DRUGS (4)
  1. AZD2281 [Suspect]
     Active Substance: OLAPARIB
     Indication: FALLOPIAN TUBE CANCER
     Route: 048
     Dates: start: 20160909
  2. AZD2171 [Suspect]
     Active Substance: CEDIRANIB
     Indication: FALLOPIAN TUBE CANCER
     Dosage: 480 MG TOTAL DOSE ADMINISTERED THIS COURSE
     Route: 048
     Dates: start: 20161229, end: 20170113
  3. AZD2171 [Suspect]
     Active Substance: CEDIRANIB
     Indication: FALLOPIAN TUBE CANCER
     Route: 048
     Dates: start: 20160909
  4. AZD2281 [Suspect]
     Active Substance: OLAPARIB
     Indication: FALLOPIAN TUBE CANCER
     Dosage: 6200 MG TOTAL DOSE ADMINISTERED THIS COURSE
     Route: 048
     Dates: start: 20161229, end: 20170113

REACTIONS (14)
  - Neutropenia [Not Recovered/Not Resolved]
  - Nausea [Not Recovered/Not Resolved]
  - Lymphocyte count decreased [Not Recovered/Not Resolved]
  - Fatigue [Not Recovered/Not Resolved]
  - Duodenal obstruction [Not Recovered/Not Resolved]
  - White blood cell count decreased [Not Recovered/Not Resolved]
  - Anaemia [Not Recovered/Not Resolved]
  - Platelet count decreased [Not Recovered/Not Resolved]
  - Pneumonia [Not Recovered/Not Resolved]
  - Colitis [Not Recovered/Not Resolved]
  - Vomiting [Not Recovered/Not Resolved]
  - Dehydration [Not Recovered/Not Resolved]
  - Diarrhoea [Recovered/Resolved]
  - Neoplasm malignant [Fatal]

NARRATIVE: CASE EVENT DATE: 20170107
